FAERS Safety Report 4819215-3 (Version None)
Quarter: 2005Q4

REPORT INFORMATION
  Report Type: 
  Country: None (occurrence: None)
  Receive Date: 20051103
  Receipt Date: 20051024
  Transmission Date: 20060501
  Serious: Yes (Hospitalization)
  Sender: FDA-Public Use
  Company Number: FR-GLAXOSMITHKLINE-B0398576A

PATIENT
  Age: 35 Year
  Sex: Male
  Weight: 55 kg

DRUGS (2)
  1. COMBIVIR [Suspect]
     Indication: HIV INFECTION
     Route: 048
     Dates: start: 20040301, end: 20050903
  2. SUSTIVA [Suspect]
     Indication: HIV INFECTION
     Route: 048

REACTIONS (4)
  - ANAEMIA MACROCYTIC [None]
  - BONE MARROW DISORDER [None]
  - ERYTHROPOIESIS ABNORMAL [None]
  - FOLATE DEFICIENCY [None]
